FAERS Safety Report 6060177-1 (Version None)
Quarter: 2009Q1

REPORT INFORMATION
  Report Type: 
  Country: None (occurrence: None)
  Receive Date: 20090128
  Receipt Date: 20090120
  Transmission Date: 20090719
  Serious: Yes (Other)
  Sender: FDA-Public Use
  Company Number: CHPA2009US00868

PATIENT
  Age: 73 Year
  Sex: Male
  Weight: 66.7 kg

DRUGS (4)
  1. VOLTAREN [Suspect]
     Indication: ARTHRITIS
     Dosage: 0.5 TO 1G, BID, TOPICAL
     Route: 061
     Dates: start: 20090101
  2. NABUMETONE [Concomitant]
  3. DRUG THERAPY NOS (DRUG THERAPY NOS) [Concomitant]
  4. TYLENOL ARTHRITIS (PARACETAMOL) [Concomitant]

REACTIONS (4)
  - BLISTER [None]
  - EYELID DISORDER [None]
  - HERPES ZOSTER [None]
  - PERIORBITAL OEDEMA [None]
